FAERS Safety Report 9403707 (Version 1)
Quarter: 2013Q3

REPORT INFORMATION
  Report Type: Spontaneous
  Country: US (occurrence: None)
  Receive Date: 20130715
  Receipt Date: 20130715
  Transmission Date: 20140515
  Serious: Yes (Hospitalization)
  Sender: FDA-Public Use
  Company Number: None

PATIENT
  Age: 43 Year
  Sex: Female
  Weight: 74.3 kg

DRUGS (2)
  1. CYTARABINE [Suspect]
  2. DAUNORUBICIN [Suspect]

REACTIONS (4)
  - Thrombocytopenia [None]
  - Haemorrhage intracranial [None]
  - Autoimmune disorder [None]
  - Autoantibody positive [None]
